FAERS Safety Report 9451050 (Version 1)
Quarter: 2013Q3

REPORT INFORMATION
  Report Type: Report from Study
  Country: US (occurrence: US)
  Receive Date: 20130809
  Receipt Date: 20130809
  Transmission Date: 20140515
  Serious: Yes (Other)
  Sender: FDA-Public Use
  Company Number: US-ABBOTT-13P-163-1129847-00

PATIENT
  Age: 51 Year
  Sex: Male

DRUGS (1)
  1. HUMIRA [Suspect]
     Indication: CROHN^S DISEASE

REACTIONS (8)
  - Gastric ulcer [Unknown]
  - Surgery [Unknown]
  - Impaired healing [Unknown]
  - Impaired healing [Unknown]
  - Drug ineffective [Unknown]
  - Unevaluable event [Unknown]
  - Emotional distress [Unknown]
  - Impaired work ability [Unknown]
